FAERS Safety Report 24438484 (Version 2)
Quarter: 2024Q4

REPORT INFORMATION
  Report Type: Spontaneous
  Country: US (occurrence: US)
  Receive Date: 20241015
  Receipt Date: 20241108
  Transmission Date: 20250114
  Serious: No
  Sender: PFIZER
  Company Number: US-PFIZER INC-PV202400132461

PATIENT
  Age: 27 Year
  Sex: Female

DRUGS (1)
  1. ZAVZPRET [Suspect]
     Active Substance: ZAVEGEPANT HYDROCHLORIDE
     Indication: Migraine
     Dosage: UNK, AS NEEDED

REACTIONS (4)
  - Rhinalgia [Unknown]
  - Nasal congestion [Unknown]
  - Nasal discomfort [Unknown]
  - Intentional product misuse [Unknown]
